FAERS Safety Report 17791807 (Version 1)
Quarter: 2020Q2

REPORT INFORMATION
  Report Type: Spontaneous
  Country: US (occurrence: US)
  Receive Date: 20200515
  Receipt Date: 20200515
  Transmission Date: 20200714
  Serious: Yes (Hospitalization)
  Sender: FDA-Public Use
  Company Number: None

PATIENT
  Age: 62 Year
  Sex: Male

DRUGS (22)
  1. ATOVAQUONE. [Concomitant]
     Active Substance: ATOVAQUONE
  2. OXALIPLATIN. [Concomitant]
     Active Substance: OXALIPLATIN
  3. CALCIUM/D [Concomitant]
  4. AMLODIPINE [Concomitant]
     Active Substance: AMLODIPINE BESYLATE
  5. RITUXAN [Concomitant]
     Active Substance: RITUXIMAB
  6. MI-ACID-GAS [Concomitant]
  7. TYLENOL [Concomitant]
     Active Substance: ACETAMINOPHEN
  8. FAMOTIDINE. [Concomitant]
     Active Substance: FAMOTIDINE
  9. CYCLOSPORINE. [Concomitant]
     Active Substance: CYCLOSPORINE
  10. PRENATAL [Concomitant]
     Active Substance: VITAMINS
  11. GABAPENTIN. [Concomitant]
     Active Substance: GABAPENTIN
  12. METOPROLOL TARTRATE. [Concomitant]
     Active Substance: METOPROLOL TARTRATE
  13. MAG OXIDE [Concomitant]
     Active Substance: MAGNESIUM OXIDE
  14. DEXAMETHASON [Concomitant]
     Active Substance: DEXAMETHASONE
  15. LORAZEPAM. [Concomitant]
     Active Substance: LORAZEPAM
  16. GEMZAR [Concomitant]
     Active Substance: GEMCITABINE HYDROCHLORIDE
  17. POSACONAZOLE [Concomitant]
     Active Substance: POSACONAZOLE
  18. FORTEO [Suspect]
     Active Substance: TERIPARATIDE
     Indication: PRODUCT USED FOR UNKNOWN INDICATION
     Route: 058
     Dates: start: 20200227
  19. ATOVAQUONE. [Concomitant]
     Active Substance: ATOVAQUONE
  20. OMEPRAZOLE. [Concomitant]
     Active Substance: OMEPRAZOLE
  21. BENADRYL [Concomitant]
     Active Substance: DIPHENHYDRAMINE HYDROCHLORIDE
  22. VALGANCYCLOVIR [Concomitant]
     Active Substance: VALGANCICLOVIR

REACTIONS (2)
  - Hospitalisation [None]
  - Therapy interrupted [None]
